FAERS Safety Report 7231098-3 (Version None)
Quarter: 2011Q1

REPORT INFORMATION
  Report Type: 
  Country: None (occurrence: None)
  Receive Date: 20110118
  Receipt Date: 20110110
  Transmission Date: 20110831
  Serious: Yes (Hospitalization)
  Sender: FDA-Public Use
  Company Number: US-US-EMD SERONO, INC.-7006913

PATIENT
  Sex: Male
  Weight: 84 kg

DRUGS (2)
  1. REBIF [Suspect]
     Indication: MULTIPLE SCLEROSIS
     Route: 058
     Dates: start: 20100317
  2. UNSPECIFIED PAIN PILLS [Concomitant]
     Indication: PAIN

REACTIONS (5)
  - MULTIPLE SCLEROSIS RELAPSE [None]
  - INJECTION SITE ERYTHEMA [None]
  - LUNG CYST [None]
  - LUNG DISORDER [None]
  - DYSPNOEA [None]
